FAERS Safety Report 21505073 (Version 1)
Quarter: 2022Q4

REPORT INFORMATION
  Report Type: Spontaneous
  Country: AT (occurrence: AT)
  Receive Date: 20221026
  Receipt Date: 20221026
  Transmission Date: 20230113
  Serious: Yes (Other)
  Sender: FDA-Public Use
  Company Number: AT-002147023-NVSC2022AT231830

PATIENT
  Sex: Male

DRUGS (1)
  1. REMICADE [Suspect]
     Active Substance: INFLIXIMAB
     Indication: Granulomatosis with polyangiitis
     Dosage: UNK
     Route: 041

REACTIONS (2)
  - Disseminated tuberculosis [Unknown]
  - Product use in unapproved indication [Unknown]
